FAERS Safety Report 21846257 (Version 2)
Quarter: 2023Q1

REPORT INFORMATION
  Report Type: Spontaneous
  Country: CA (occurrence: None)
  Receive Date: 20230111
  Receipt Date: 20230112
  Transmission Date: 20230418
  Serious: No
  Sender: FDA-Public Use
  Company Number: CA-ROCHE-3259893

PATIENT
  Sex: Female

DRUGS (1)
  1. ACTEMRA [Suspect]
     Active Substance: TOCILIZUMAB
     Indication: Giant cell arteritis
     Dosage: 162 MG/0.9 ML
     Route: 058
     Dates: start: 20221229

REACTIONS (4)
  - Pain [Unknown]
  - Asthenia [Unknown]
  - Exposure via skin contact [Unknown]
  - Accidental overdose [Unknown]
